FAERS Safety Report 5749888-2 (Version None)
Quarter: 2008Q2

REPORT INFORMATION
  Report Type: 
  Country: None (occurrence: None)
  Receive Date: 20080527
  Receipt Date: 20080519
  Transmission Date: 20081010
  Serious: Yes (Death, Disabling)
  Sender: FDA-Public Use
  Company Number: US-ASTRAZENECA-2006UW21555

PATIENT
  Age: 20989 Day
  Sex: Female

DRUGS (1)
  1. SEROQUEL [Suspect]
     Indication: BIPOLAR DISORDER
     Route: 048
     Dates: start: 20041226, end: 20060330

REACTIONS (2)
  - DEATH [None]
  - DIABETES MELLITUS [None]
